FAERS Safety Report 9050601 (Version 1)
Quarter: 2013Q1

REPORT INFORMATION
  Report Type: Spontaneous
  Country: CA (occurrence: CA)
  Receive Date: 20130205
  Receipt Date: 20130205
  Transmission Date: 20140127
  Serious: Yes (Other)
  Sender: FDA-Public Use
  Company Number: CA-BAYER-2013-011487

PATIENT
  Age: 81 Year
  Sex: 0

DRUGS (10)
  1. XARELTO [Suspect]
     Indication: PRODUCT USED FOR UNKNOWN INDICATION
     Dosage: 15 MG, QD
     Dates: start: 20121212
  2. ACETYLSALICYLIC ACID({=100 MG) [Interacting]
     Dosage: 81 MG, UNK
     Dates: start: 2000
  3. AMINOSALICYLIC ACID [Concomitant]
     Dosage: 2400 MG, UNK
     Dates: start: 1990
  4. PARIET [Concomitant]
     Dosage: 20 MG, UNK
     Dates: end: 2003
  5. DIGOXIN [Concomitant]
     Dosage: 125 MG, UNK
     Dates: end: 2012
  6. CRESTOR [Concomitant]
     Dosage: 10 MG, UNK
     Dates: end: 2007
  7. HYDROCHLOROTHIAZIDE [Concomitant]
     Dosage: 25 MG, UNK
  8. PAXIL [Concomitant]
     Dosage: 20 MG, UNK
  9. AMLODIPINE [Concomitant]
     Dosage: 10 MG, UNK
  10. FLOMAX [TAMSULOSIN HYDROCHLORIDE] [Concomitant]

REACTIONS (3)
  - Gastrointestinal haemorrhage [Recovering/Resolving]
  - Haemoglobin decreased [None]
  - Drug interaction [None]
